FAERS Safety Report 17845729 (Version 2)
Quarter: 2020Q3

REPORT INFORMATION
  Report Type: Report from Study
  Country: IL (occurrence: IL)
  Receive Date: 20200601
  Receipt Date: 20200818
  Transmission Date: 20201103
  Serious: Yes (Hospitalization)
  Sender: FDA-Public Use
  Company Number: IL-KYOWAKIRIN-2020BKK008662

PATIENT

DRUGS (2)
  1. BUROSUMAB [Suspect]
     Active Substance: BUROSUMAB
     Indication: HEREDITARY HYPOPHOSPHATAEMIC RICKETS
     Dosage: 70 MG, 1 MG/KG,  ONCE A MONTH
     Route: 065
     Dates: start: 202004, end: 202004
  2. BUROSUMAB [Suspect]
     Active Substance: BUROSUMAB
     Dosage: 35 MG
     Route: 065
     Dates: start: 20200505, end: 202005

REACTIONS (4)
  - Vertebral foraminal stenosis [Unknown]
  - Back pain [Recovering/Resolving]
  - Flank pain [Recovering/Resolving]
  - Incorrect dose administered [Recovered/Resolved]

NARRATIVE: CASE EVENT DATE: 202004
